FAERS Safety Report 7428581-4 (Version None)
Quarter: 2011Q2

REPORT INFORMATION
  Report Type: 
  Country: None (occurrence: None)
  Receive Date: 20110421
  Receipt Date: 20110310
  Transmission Date: 20111010
  Serious: Yes (Life-Threatening, Hospitalization, Other)
  Sender: FDA-Public Use
  Company Number: US-BAYER-200836339NA

PATIENT
  Age: 67 Year
  Sex: Female

DRUGS (11)
  1. AMIODARONE [Concomitant]
     Dosage: UNK UNK, QD
     Route: 048
  2. COREG [Concomitant]
     Dosage: 12.5 MG, BID
     Route: 048
  3. LISINOPRIL [Concomitant]
     Dosage: 10 MG, QD
     Route: 048
  4. ATENOLOL [Concomitant]
     Dosage: 25 MG, BID
     Route: 048
     Dates: start: 20040608
  5. ACETYLSALICYLIC ACID SRT [Concomitant]
     Dosage: 81 MG, QD
     Route: 048
  6. COUMADIN [Concomitant]
     Dosage: 3 MG, QD
     Route: 048
  7. LASIX [Concomitant]
     Dosage: UNK
     Route: 042
     Dates: start: 20040702
  8. TRASYLOL [Suspect]
     Indication: CORONARY ARTERY BYPASS
     Dosage: INITIAL TEST DOSE OF 1 ML
     Dates: start: 20040702, end: 20040702
  9. NITROGLYCERIN [Concomitant]
     Route: 060
  10. HEPARIN [Concomitant]
     Dosage: 10000 U, UNK
     Route: 042
     Dates: start: 20040702
  11. TRASYLOL [Suspect]
     Dosage: 199CC FOLLOWED BY A 500CC/HR INFUSION
     Dates: start: 20040702, end: 20040702

REACTIONS (35)
  - CARDIAC DISORDER [None]
  - GASTROINTESTINAL INJURY [None]
  - INFECTION [None]
  - DECREASED APPETITE [None]
  - EMOTIONAL DISTRESS [None]
  - RENAL IMPAIRMENT [None]
  - ANHEDONIA [None]
  - CARDIAC ARREST [None]
  - ADVERSE EVENT [None]
  - UNEVALUABLE EVENT [None]
  - GAIT DISTURBANCE [None]
  - ANXIETY [None]
  - INJURY [None]
  - BRAIN INJURY [None]
  - PAROSMIA [None]
  - DYSGEUSIA [None]
  - MULTI-ORGAN FAILURE [None]
  - VASCULAR INJURY [None]
  - MENTAL DISORDER [None]
  - RENAL FAILURE [None]
  - COAGULOPATHY [None]
  - PAIN [None]
  - DEPRESSION [None]
  - RENAL INJURY [None]
  - THROMBOSIS [None]
  - WEIGHT DECREASED [None]
  - FEAR [None]
  - ASTHENIA [None]
  - IMMUNODEFICIENCY [None]
  - GRAFT THROMBOSIS [None]
  - NERVOUS SYSTEM DISORDER [None]
  - BALANCE DISORDER [None]
  - HAEMORRHOIDAL HAEMORRHAGE [None]
  - AGEUSIA [None]
  - STRESS [None]
